FAERS Safety Report 9399780 (Version 1)
Quarter: 2013Q3

REPORT INFORMATION
  Report Type: Spontaneous
  Country: US (occurrence: US)
  Receive Date: 20130715
  Receipt Date: 20130715
  Transmission Date: 20140515
  Serious: Yes (Other)
  Sender: FDA-Public Use
  Company Number: PHEH2013US014488

PATIENT
  Sex: Male
  Weight: 101.6 kg

DRUGS (10)
  1. EXJADE [Suspect]
     Indication: IRON OVERLOAD
     Dosage: UNK UKN, UNK
  2. SOLIRIS [Suspect]
     Indication: PAROXYSMAL NOCTURNAL HAEMOGLOBINURIA
     Dosage: 600 MG, QW
     Route: 042
  3. SOLIRIS [Suspect]
     Dosage: 900 MG, Q2W
     Route: 041
     Dates: start: 20120830
  4. NAPROXEN [Concomitant]
     Dosage: UNK UKN, UNK
  5. ASPIRIN [Concomitant]
     Dosage: UNK UKN, UNK
  6. MULTI-VIT [Concomitant]
     Dosage: UNK UKN, UNK
  7. PROCHLORPERAZINE MALEATE [Concomitant]
     Dosage: UNK UKN, UNK
  8. IVGG [Concomitant]
     Dosage: 03 U, UNK
  9. TASIGNA [Concomitant]
  10. DANAZOL [Concomitant]

REACTIONS (2)
  - Erythema [Unknown]
  - Rash [Unknown]
